FAERS Safety Report 12380203 (Version 1)
Quarter: 2016Q2

REPORT INFORMATION
  Report Type: Spontaneous
  Country: US (occurrence: US)
  Receive Date: 20160518
  Receipt Date: 20160518
  Transmission Date: 20160815
  Serious: Yes (Other)
  Sender: FDA-Public Use
  Company Number: US-STRIDES ARCOLAB LIMITED-2015SP000619

PATIENT
  Age: 73 Year
  Sex: Female

DRUGS (3)
  1. VANCOMYCIN CAPSULES USP, 125 MG [Suspect]
     Active Substance: VANCOMYCIN
     Indication: CLOSTRIDIUM DIFFICILE INFECTION
     Dosage: 125 MG, UNK
     Route: 048
  2. VANCOMYCIN CAPSULES USP, 125 MG [Suspect]
     Active Substance: VANCOMYCIN
     Dosage: UNK UNK, EVERY 6 HRS
  3. VANCOMYCIN CAPSULES USP, 125 MG [Suspect]
     Active Substance: VANCOMYCIN
     Dosage: UNK

REACTIONS (3)
  - Drug ineffective [Recovered/Resolved]
  - Product substitution issue [Unknown]
  - Clostridium difficile infection [Recovered/Resolved]
